FAERS Safety Report 10759128 (Version 1)
Quarter: 2015Q1

REPORT INFORMATION
  Report Type: Spontaneous
  Country: US (occurrence: US)
  Receive Date: 20150203
  Receipt Date: 20150203
  Transmission Date: 20150721
  Serious: No
  Sender: FDA-Public Use
  Company Number: US-ELI_LILLY_AND_COMPANY-US201501005106

PATIENT
  Sex: Male

DRUGS (1)
  1. ZYPREXA ZYDIS [Suspect]
     Active Substance: OLANZAPINE
     Indication: PSYCHOTIC BEHAVIOUR
     Dosage: 5 MG, UNK
     Dates: start: 2006

REACTIONS (19)
  - Faecal incontinence [Unknown]
  - Urinary incontinence [Unknown]
  - Tic [Unknown]
  - Insomnia [Unknown]
  - Incorrect dose administered [Unknown]
  - Social avoidant behaviour [Unknown]
  - Weight decreased [Unknown]
  - Drug withdrawal syndrome [Unknown]
  - Abnormal behaviour [Unknown]
  - Repetitive speech [Unknown]
  - Incoherent [Unknown]
  - Crying [Unknown]
  - Stereotypy [Unknown]
  - Tardive dyskinesia [Unknown]
  - Obsessive-compulsive disorder [Unknown]
  - Memory impairment [Unknown]
  - Feeling abnormal [Unknown]
  - Gastrooesophageal reflux disease [Unknown]
  - Wrong technique in drug usage process [Unknown]

NARRATIVE: CASE EVENT DATE: 2011
